FAERS Safety Report 13195684 (Version 1)
Quarter: 2017Q1

REPORT INFORMATION
  Report Type: Spontaneous
  Country: US (occurrence: US)
  Receive Date: 20170208
  Receipt Date: 20170208
  Transmission Date: 20170428
  Serious: Yes (Disabling, Other)
  Sender: FDA-Public Use
  Company Number: US-ACCORD-048071

PATIENT
  Age: 16 Year
  Sex: Male

DRUGS (2)
  1. FLUOROURACIL/FLUOROURACIL SODIUM [Concomitant]
     Indication: NASOPHARYNGEAL CANCER STAGE III
  2. CISPLATIN. [Suspect]
     Active Substance: CISPLATIN
     Indication: NASOPHARYNGEAL CANCER STAGE III

REACTIONS (5)
  - Deafness neurosensory [Unknown]
  - Stomatitis [Unknown]
  - Off label use [Unknown]
  - Dry mouth [Unknown]
  - Ototoxicity [Unknown]
